FAERS Safety Report 25049271 (Version 2)
Quarter: 2025Q2

REPORT INFORMATION
  Report Type: Spontaneous
  Country: JP (occurrence: JP)
  Receive Date: 20250307
  Receipt Date: 20250604
  Transmission Date: 20250717
  Serious: Yes (Other)
  Sender: BRISTOL-MYERS SQUIBB COMPANY
  Company Number: JP-TAKEDA-2025TJP002341

PATIENT

DRUGS (2)
  1. NIVOLUMAB [Suspect]
     Active Substance: NIVOLUMAB
     Indication: Metastatic renal cell carcinoma
  2. CABOMETYX [Suspect]
     Active Substance: CABOZANTINIB S-MALATE
     Indication: Metastatic renal cell carcinoma
     Route: 048

REACTIONS (14)
  - Immune-mediated hypophysitis [Unknown]
  - Immune-mediated dermatitis [Unknown]
  - Encephalomyelitis [Unknown]
  - Immune-mediated enterocolitis [Unknown]
  - Immune-mediated hepatic disorder [Unknown]
  - Immune-mediated lung disease [Unknown]
  - Hepatic function abnormal [Unknown]
  - Palmar-plantar erythrodysaesthesia syndrome [Unknown]
  - Hypertension [Unknown]
  - Proteinuria [Unknown]
  - Diarrhoea [Unknown]
  - Malaise [Unknown]
  - Platelet count decreased [Unknown]
  - Neutrophil count decreased [Unknown]
